FAERS Safety Report 5811313-0 (Version None)
Quarter: 2008Q3

REPORT INFORMATION
  Report Type: 
  Country: None (occurrence: None)
  Receive Date: 20080710
  Receipt Date: 20080702
  Transmission Date: 20090109
  Serious: Yes (Death)
  Sender: FDA-Public Use
  Company Number: 2008EN000101

PATIENT
  Age: 2 Month
  Sex: Male

DRUGS (2)
  1. ADAGEN [Suspect]
     Indication: ADENOSINE DEAMINASE DEFICIENCY
     Dosage: 25 IU/KG; BIW; IM; 325 IU/KG; QW; IM
     Route: 030
     Dates: end: 20080701
  2. ADAGEN [Suspect]
     Indication: ADENOSINE DEAMINASE DEFICIENCY
     Dosage: 25 IU/KG; BIW; IM; 325 IU/KG; QW; IM
     Route: 030
     Dates: start: 20080524

REACTIONS (4)
  - CONDITION AGGRAVATED [None]
  - DRUG TOXICITY [None]
  - MALAISE [None]
  - RESPIRATORY FAILURE [None]
